FAERS Safety Report 22063323 (Version 1)
Quarter: 2023Q1

REPORT INFORMATION
  Report Type: Spontaneous
  Country: IT (occurrence: IT)
  Receive Date: 20230306
  Receipt Date: 20230306
  Transmission Date: 20230417
  Serious: Yes (Hospitalization)
  Sender: FDA-Public Use
  Company Number: IT-AUROBINDO PHARMA LTD, UK-AUR-APL-2014-06348

PATIENT
  Age: 16 Year
  Sex: Female

DRUGS (2)
  1. ALPRAZOLAM [Suspect]
     Active Substance: ALPRAZOLAM
     Indication: Drug abuse
     Dosage: 15 DF, TOTAL
     Route: 048
     Dates: start: 20130708, end: 20130708
  2. SERTRALINE [Suspect]
     Active Substance: SERTRALINE HYDROCHLORIDE
     Indication: Drug abuse
     Dosage: 30 DF, TOTAL
     Route: 048
     Dates: start: 20130708, end: 20130708

REACTIONS (5)
  - Tachycardia [Unknown]
  - Bradyphrenia [Unknown]
  - Drug abuse [Unknown]
  - Vomiting [Unknown]
  - Overdose [Unknown]

NARRATIVE: CASE EVENT DATE: 20130708
